FAERS Safety Report 24692920 (Version 1)
Quarter: 2024Q4

REPORT INFORMATION
  Report Type: Spontaneous
  Country: GB (occurrence: GB)
  Receive Date: 20241203
  Receipt Date: 20241203
  Transmission Date: 20250114
  Serious: Yes (Hospitalization, Other)
  Sender: ELI LILLY AND COMPANY
  Company Number: None

PATIENT
  Age: 34 Year
  Sex: Female
  Weight: 76 kg

DRUGS (1)
  1. MOUNJARO [Suspect]
     Active Substance: TIRZEPATIDE
     Indication: Product used for unknown indication
     Dosage: 5 MG, UNKNOWN
     Route: 065
     Dates: start: 20241117

REACTIONS (6)
  - Vision blurred [Recovering/Resolving]
  - Illness [Unknown]
  - Paraesthesia [Recovering/Resolving]
  - Dizziness [Unknown]
  - Abdominal pain [Recovering/Resolving]
  - Diarrhoea [Recovered/Resolved]
